FAERS Safety Report 10587232 (Version 1)
Quarter: 2014Q4

REPORT INFORMATION
  Report Type: Spontaneous
  Country: AT (occurrence: AT)
  Receive Date: 20141117
  Receipt Date: 20141117
  Transmission Date: 20150529
  Serious: Yes (Death, Hospitalization, Other)
  Sender: FDA-Public Use
  Company Number: AT-ASTELLAS-2014EU014176

PATIENT
  Age: 73 Year
  Sex: Male

DRUGS (1)
  1. XTANDI [Suspect]
     Active Substance: ENZALUTAMIDE
     Indication: PROSTATE CANCER
     Dosage: ONCE IN THE MORNING
     Route: 065
     Dates: start: 20140306

REACTIONS (4)
  - Pain [Fatal]
  - Obesity [Unknown]
  - Renal failure [Unknown]
  - Tachycardia [Fatal]

NARRATIVE: CASE EVENT DATE: 20140313
